FAERS Safety Report 26142273 (Version 1)
Quarter: 2025Q4

REPORT INFORMATION
  Report Type: Spontaneous
  Country: US (occurrence: US)
  Receive Date: 20251210
  Receipt Date: 20251210
  Transmission Date: 20260118
  Serious: Yes (Hospitalization, Other)
  Sender: NOVO NORDISK
  Company Number: US-NOVOPROD-1579592

PATIENT
  Age: 65 Year
  Sex: Female

DRUGS (6)
  1. RYBELSUS [Suspect]
     Active Substance: SEMAGLUTIDE
     Indication: Type 1 diabetes mellitus
     Dosage: 3 MG, BID
     Dates: start: 20241111, end: 20250414
  2. RYBELSUS [Suspect]
     Active Substance: SEMAGLUTIDE
     Indication: Weight control
  3. PREDNISONE [Concomitant]
     Active Substance: PREDNISONE
     Indication: Psoriatic arthropathy
     Dosage: WAS AT 20 AT ONE POINT BUT NOW TAKING THE LOWEST ONE. EVERY 3 TO 4 WEEKS SHE IS TRYING TO BRING THE
     Dates: start: 20221205
  4. CORTISONE [Concomitant]
     Active Substance: CORTISONE
     Indication: Psoriatic arthropathy
     Dosage: UNK
  5. CAMZYOS [Concomitant]
     Active Substance: MAVACAMTEN
     Indication: Hypertrophic cardiomyopathy
     Dosage: 5 MG
     Dates: start: 20250819
  6. HUMALOG [Concomitant]
     Active Substance: INSULIN LISPRO
     Indication: Type 1 diabetes mellitus
     Dosage: 97 UNITS FOR AN AVERAGE OF 120 CARBOHYDRATES A DAY

REACTIONS (8)
  - Cardiac arrest [Not Recovered/Not Resolved]
  - Electrocardiogram QT prolonged [Unknown]
  - Torsade de pointes [Unknown]
  - Peripheral swelling [Unknown]
  - Post-traumatic stress disorder [Not Recovered/Not Resolved]
  - Dizziness [Unknown]
  - Inappropriate schedule of product administration [Unknown]
  - Product use in unapproved indication [Unknown]

NARRATIVE: CASE EVENT DATE: 20250414
